FAERS Safety Report 8603296 (Version 2)
Quarter: 2013Q2

REPORT INFORMATION
  Report Type: Spontaneous
  Country: US (occurrence: US)
  Receive Date: 20120607
  Receipt Date: 20130610
  Transmission Date: 20140414
  Serious: No
  Sender: FDA-Public Use
  Company Number: US-BRISTOL-MYERS SQUIBB COMPANY-16347718

PATIENT
  Age: 33 Year
  Sex: Female
  Weight: 93 kg

DRUGS (4)
  1. SUSTIVA [Suspect]
     Indication: HIV TEST
  2. AZT [Suspect]
     Indication: HIV TEST
  3. VIRAMUNE [Suspect]
     Indication: HIV TEST
  4. VIREAD [Suspect]
     Indication: HIV TEST

REACTIONS (5)
  - Pregnancy [Unknown]
  - Malaise [Unknown]
  - Migraine [Unknown]
  - Weight decreased [Unknown]
  - Decreased appetite [Unknown]
